FAERS Safety Report 4677631-7 (Version None)
Quarter: 2005Q2

REPORT INFORMATION
  Report Type: 
  Country: None (occurrence: None)
  Receive Date: 20050531
  Receipt Date: 20050524
  Transmission Date: 20051028
  Serious: Yes (Hospitalization)
  Sender: FDA-Public Use
  Company Number: GB-ROCHE-405625

PATIENT
  Sex: Male

DRUGS (5)
  1. PEGASYS [Suspect]
     Indication: HEPATITIS C
     Route: 042
  2. COPEGUS [Suspect]
     Indication: HEPATITIS C
     Dosage: DOSE FORM IS REPORTED AS CAPSULE.
     Route: 065
  3. KALETRA [Concomitant]
  4. TENOFOVIR [Concomitant]
  5. LAMIVUDINE [Concomitant]

REACTIONS (1)
  - PERIPHERAL ISCHAEMIA [None]
